FAERS Safety Report 11729835 (Version 7)
Quarter: 2016Q1

REPORT INFORMATION
  Report Type: Spontaneous
  Country: JP (occurrence: JP)
  Receive Date: 20151112
  Receipt Date: 20160225
  Transmission Date: 20160525
  Serious: Yes (Hospitalization, Other)
  Sender: FDA-Public Use
  Company Number: JP-SA-2015SA177606

PATIENT
  Age: 70 Year
  Sex: Male
  Weight: 80 kg

DRUGS (19)
  1. LASIX [Suspect]
     Active Substance: FUROSEMIDE
     Indication: OEDEMA PERIPHERAL
     Route: 065
  2. BLEO [Suspect]
     Active Substance: BLEOMYCIN HYDROCHLORIDE
     Indication: TESTICULAR GERM CELL TUMOUR MIXED STAGE III
     Route: 065
  3. CISPLATIN. [Suspect]
     Active Substance: CISPLATIN
     Indication: TESTICULAR GERM CELL TUMOUR MIXED STAGE III
     Route: 065
  4. LASTET [Suspect]
     Active Substance: ETOPOSIDE
     Indication: TESTICULAR GERM CELL TUMOUR MIXED STAGE III
     Route: 065
  5. LASTET [Suspect]
     Active Substance: ETOPOSIDE
     Indication: TESTIS CANCER RECURRENT
     Route: 065
  6. CARBOPLATIN. [Suspect]
     Active Substance: CARBOPLATIN
     Indication: TESTICULAR GERM CELL TUMOUR MIXED STAGE III
     Route: 065
  7. SENNOSIDE [Concomitant]
     Active Substance: SENNOSIDES
     Dosage: 2T2X
  8. FENTANYL CITRATE. [Concomitant]
     Active Substance: FENTANYL CITRATE
     Dosage: 100 MCG FOR ORAL USE; SINGLE USE
  9. OXYCODONE HYDROCHLORIDE. [Concomitant]
     Active Substance: OXYCODONE HYDROCHLORIDE
     Dosage: SINGLE USE
  10. LASIX [Suspect]
     Active Substance: FUROSEMIDE
     Indication: OEDEMA PERIPHERAL
     Route: 065
  11. CISPLATIN. [Suspect]
     Active Substance: CISPLATIN
     Indication: TESTIS CANCER RECURRENT
     Route: 065
  12. LASTET [Suspect]
     Active Substance: ETOPOSIDE
     Indication: TESTIS CANCER RECURRENT
     Route: 065
  13. MAGNESIUM CHLORIDE. [Concomitant]
     Active Substance: MAGNESIUM CHLORIDE
     Dosage: 3T3X
  14. FENTANYL CITRATE. [Concomitant]
     Active Substance: FENTANYL CITRATE
     Dosage: PATCH 8 MG 1 PATCH/DAY
  15. CELECOXIB. [Concomitant]
     Active Substance: CELECOXIB
     Dosage: 2T2X
  16. LANSOPRAZOLE. [Concomitant]
     Active Substance: LANSOPRAZOLE
     Dosage: 1T1X
  17. CISPLATIN. [Suspect]
     Active Substance: CISPLATIN
     Indication: TESTICULAR GERM CELL TUMOUR MIXED STAGE III
     Route: 065
  18. LASTET [Suspect]
     Active Substance: ETOPOSIDE
     Indication: TESTICULAR GERM CELL TUMOUR MIXED STAGE III
     Route: 065
  19. CISPLATIN. [Suspect]
     Active Substance: CISPLATIN
     Indication: TESTIS CANCER RECURRENT
     Route: 065

REACTIONS (4)
  - Hypovolaemia [Unknown]
  - Renal impairment [Unknown]
  - Bladder cancer [Unknown]
  - Prostate cancer [Unknown]
